FAERS Safety Report 7362120-1 (Version None)
Quarter: 2011Q1

REPORT INFORMATION
  Report Type: 
  Country: None (occurrence: None)
  Receive Date: 20110315
  Receipt Date: 20110315
  Transmission Date: 20110831
  Serious: Yes (Hospitalization)
  Sender: FDA-Public Use
  Company Number: None

PATIENT
  Age: 39 Year
  Sex: Male
  Weight: 89.5 kg

DRUGS (1)
  1. LEVULAN [Suspect]
     Indication: BRAIN NEOPLASM
     Dosage: 20 MG/KG ONCE PO
     Route: 048
     Dates: start: 20110127, end: 20110127

REACTIONS (3)
  - SKIN LESION [None]
  - RHABDOMYOLYSIS [None]
  - PROCEDURAL COMPLICATION [None]
